FAERS Safety Report 16053489 (Version 6)
Quarter: 2021Q3

REPORT INFORMATION
  Report Type: Spontaneous
  Country: US (occurrence: US)
  Receive Date: 20190308
  Receipt Date: 20210701
  Transmission Date: 20211014
  Serious: Yes (Other)
  Sender: FDA-Public Use
  Company Number: US-PFIZER INC-2019098285

PATIENT
  Age: 69 Year
  Sex: Female
  Weight: 95.25 kg

DRUGS (1)
  1. IBRANCE [Suspect]
     Active Substance: PALBOCICLIB
     Indication: BREAST CANCER METASTATIC
     Dosage: 100 MG, 1X/DAY
     Route: 048
     Dates: start: 201612

REACTIONS (3)
  - Cataract [Unknown]
  - Neutropenia [Unknown]
  - Urinary tract infection [Recovered/Resolved]
